FAERS Safety Report 18253537 (Version 1)
Quarter: 2020Q3

REPORT INFORMATION
  Report Type: Report from Study
  Country: US (occurrence: US)
  Receive Date: 20200910
  Receipt Date: 20200910
  Transmission Date: 20201103
  Serious: Yes (Other)
  Sender: FDA-Public Use
  Company Number: US-GILEAD-2020-0493935

PATIENT
  Age: 48 Year
  Sex: Female

DRUGS (3)
  1. ADDERALL [Suspect]
     Active Substance: AMPHETAMINE ASPARTATE\AMPHETAMINE SULFATE\DEXTROAMPHETAMINE SACCHARATE\DEXTROAMPHETAMINE SULFATE
     Indication: PRODUCT USED FOR UNKNOWN INDICATION
     Dosage: UNK
     Route: 065
  2. ZYRTEC [Concomitant]
     Active Substance: CETIRIZINE HYDROCHLORIDE
  3. AMBRISENTAN [Suspect]
     Active Substance: AMBRISENTAN
     Indication: PRODUCT USED FOR UNKNOWN INDICATION
     Dosage: 5 MG
     Route: 065

REACTIONS (16)
  - Mental impairment [Unknown]
  - Stress [Unknown]
  - Attention deficit hyperactivity disorder [Unknown]
  - Meniere^s disease [Unknown]
  - Loss of consciousness [Unknown]
  - Allergy to chemicals [Unknown]
  - Memory impairment [Unknown]
  - Eyelid disorder [Unknown]
  - Keratomileusis [Unknown]
  - Blood cholesterol increased [Unknown]
  - Photophobia [Unknown]
  - Hypertension [Unknown]
  - Cluster headache [Unknown]
  - Mental disorder [Unknown]
  - Dehydration [Unknown]
  - Oxygen saturation decreased [Unknown]
